FAERS Safety Report 16350390 (Version 1)
Quarter: 2019Q2

REPORT INFORMATION
  Report Type: Spontaneous
  Country: US (occurrence: US)
  Receive Date: 20190524
  Receipt Date: 20190524
  Transmission Date: 20190711
  Serious: No
  Sender: FDA-Public Use
  Company Number: US-ACCORD-067724

PATIENT
  Age: 67 Year

DRUGS (1)
  1. QUETIAPINE. [Suspect]
     Active Substance: QUETIAPINE
     Indication: BIPOLAR DISORDER
     Dosage: STRENGTH: 400 MG?2X AT NIGHT

REACTIONS (3)
  - Dry mouth [Unknown]
  - Dehydration [Unknown]
  - Tooth loss [Unknown]
